FAERS Safety Report 4977412-0 (Version None)
Quarter: 2006Q2

REPORT INFORMATION
  Report Type: 
  Country: None (occurrence: None)
  Receive Date: 20060412
  Receipt Date: 20060406
  Transmission Date: 20061013
  Serious: Yes (Other)
  Sender: FDA-Public Use
  Company Number: HQWYE690707APR06

PATIENT
  Age: 63 Year
  Sex: Male

DRUGS (1)
  1. CORDARONE [Suspect]
     Route: 048

REACTIONS (3)
  - OSTEOMA [None]
  - PATHOLOGICAL FRACTURE [None]
  - SPINAL FRACTURE [None]
